FAERS Safety Report 11734493 (Version 1)
Quarter: 2015Q4

REPORT INFORMATION
  Report Type: Report from Study
  Country: CN (occurrence: CN)
  Receive Date: 20151113
  Receipt Date: 20151113
  Transmission Date: 20160304
  Serious: Yes (Hospitalization, Other)
  Sender: FDA-Public Use
  Company Number: CN-BAYER-2014-058613

PATIENT
  Age: 71 Year
  Sex: Male

DRUGS (2)
  1. NEXAVAR [Suspect]
     Active Substance: SORAFENIB
     Indication: HEPATIC CANCER STAGE IV
     Dosage: 400 MG, BID
     Route: 048
     Dates: start: 20140213
  2. NEXAVAR [Suspect]
     Active Substance: SORAFENIB
     Indication: METASTASES TO LUNG

REACTIONS (7)
  - Arrhythmia [None]
  - Aortic arteriosclerosis [None]
  - Blood pressure increased [None]
  - Palmar-plantar erythrodysaesthesia syndrome [Recovered/Resolved]
  - Mouth ulceration [None]
  - Cerebral infarction [None]
  - Dyspnoea exertional [None]

NARRATIVE: CASE EVENT DATE: 2014
